FAERS Safety Report 4588914-3 (Version None)
Quarter: 2005Q1

REPORT INFORMATION
  Report Type: 
  Country: None (occurrence: None)
  Receive Date: 20050216
  Receipt Date: 20050207
  Transmission Date: 20050727
  Serious: Yes (Other)
  Sender: FDA-Public Use
  Company Number: 2004056018

PATIENT
  Age: 41 Year
  Sex: Female
  Weight: 81.6475 kg

DRUGS (5)
  1. NEURONTIN [Suspect]
     Indication: PAIN
     Dosage: 900 MG (1 D)
     Dates: end: 20020201
  2. MORPHINE SULFATE [Suspect]
     Indication: ILL-DEFINED DISORDER
     Dosage: 9 MG (1 D), INTRATHECAL
     Route: 037
  3. BACLOFEN [Suspect]
     Indication: ILL-DEFINED DISORDER
  4. ALL OTHER NON-THERAPEUTIC PRODUCTS (ALL OTHER NON-THERAPEUTIC PRODUCT) [Suspect]
     Indication: ILL-DEFINED DISORDER
     Dates: end: 20010101
  5. BUPIVACAINE [Concomitant]

REACTIONS (18)
  - ABNORMAL BEHAVIOUR [None]
  - AMNESIA [None]
  - DYSSTASIA [None]
  - FEELING HOT [None]
  - GRANULOMA [None]
  - HEART RATE INCREASED [None]
  - HOT FLUSH [None]
  - HYPERHIDROSIS [None]
  - INSOMNIA [None]
  - LOSS OF CONSCIOUSNESS [None]
  - MEDICAL DEVICE COMPLICATION [None]
  - MENTAL DISORDER [None]
  - NERVE INJURY [None]
  - OEDEMA [None]
  - PAIN [None]
  - SPEECH DISORDER [None]
  - UNEVALUABLE EVENT [None]
  - WEIGHT INCREASED [None]
